FAERS Safety Report 8492559-2 (Version None)
Quarter: 2012Q3

REPORT INFORMATION
  Report Type: 
  Country: None (occurrence: None)
  Receive Date: 20120706
  Receipt Date: 20120627
  Transmission Date: 20120928
  Serious: No
  Sender: FDA-Public Use
  Company Number: BR-B.I. PHARMACEUTICALS,INC./RIDGEFIELD-2012-BR-00355BR

PATIENT
  Sex: Female
  Weight: 57 kg

DRUGS (5)
  1. TRAYENTA [Suspect]
     Indication: DIABETES MELLITUS
     Dosage: 5 MG
     Route: 048
     Dates: start: 20120317, end: 20120501
  2. METFORMIN HYDROCHLORIDE [Concomitant]
     Indication: DIABETES MELLITUS
  3. ENDOFOLIN [Suspect]
  4. ENALAPRIL MALEATE [Suspect]
     Indication: HYPERTENSION
  5. CARVERDILOL [Concomitant]
     Indication: CARDIAC DISORDER

REACTIONS (5)
  - HYPERSENSITIVITY [None]
  - URTICARIA [None]
  - RASH MACULAR [None]
  - COUGH [None]
  - PRURITUS [None]
